FAERS Safety Report 19033991 (Version 1)
Quarter: 2021Q1

REPORT INFORMATION
  Report Type: Spontaneous
  Country: FR (occurrence: FR)
  Receive Date: 20210319
  Receipt Date: 20210319
  Transmission Date: 20210420
  Serious: Yes (Hospitalization)
  Sender: FDA-Public Use
  Company Number: FR-ELI_LILLY_AND_COMPANY-FR202102001735

PATIENT
  Age: 44 Year
  Sex: Female

DRUGS (5)
  1. OLANZAPINE. [Suspect]
     Active Substance: OLANZAPINE
     Dosage: 5 MG, DAILY (1?0?0)
     Route: 065
     Dates: start: 20200605
  2. RISPERDAL CONSTA [Suspect]
     Active Substance: RISPERIDONE
     Indication: DELUSION
     Dosage: UNK UNK, UNKNOWN
     Route: 030
  3. TRANXENE [Suspect]
     Active Substance: CLORAZEPATE DIPOTASSIUM
     Indication: PRODUCT USED FOR UNKNOWN INDICATION
     Dosage: UNK, OTHER (0?0?1)
     Route: 065
  4. EUPHYTOSE [BALLOTA NIGRA EXTRACT;COLA NITIDA [Concomitant]
     Indication: PRODUCT USED FOR UNKNOWN INDICATION
     Dosage: UNK, UNKNOWN
     Route: 065
  5. OLANZAPINE. [Suspect]
     Active Substance: OLANZAPINE
     Indication: ANXIETY
     Dosage: 10 MG, DAILY (0?0?1)
     Route: 065
     Dates: start: 20200605

REACTIONS (3)
  - Condition aggravated [Unknown]
  - Weight increased [Unknown]
  - Product dose omission issue [Recovered/Resolved]
